FAERS Safety Report 6178619-X (Version None)
Quarter: 2009Q2

REPORT INFORMATION
  Report Type: 
  Country: None (occurrence: None)
  Receive Date: 20090430
  Receipt Date: 20090423
  Transmission Date: 20091009
  Serious: Yes (Life-Threatening)
  Sender: FDA-Public Use
  Company Number: 2008US003449

PATIENT
  Age: 7 Year
  Sex: Female

DRUGS (28)
  1. AMBISOME [Suspect]
     Indication: FEBRILE NEUTROPENIA
     Dosage: 58 MG, UID/QD, IV NOS
     Route: 042
     Dates: start: 20081127, end: 20081130
  2. NEUPOGEN [Suspect]
     Indication: NEUTROPHIL COUNT DECREASED
     Dosage: 300 UG, UID/QD, IV NOS
     Route: 042
  3. URSO 250 [Concomitant]
  4. NORVASC [Concomitant]
  5. PROTEAMIN 12X (AMINOACETIC ACID, XYLITOL, ASPARTIC ACID, AMINO ACIDS N [Concomitant]
  6. SOLITA 3G (SODIUM LACTATE, CARBOHYDRATES NOS, SODIUM CHLORIDE, POTASSI [Concomitant]
  7. SODIUM CHLORIDE 0.9% [Concomitant]
  8. REHABIX K2 (GLUCOSE, CALCIUM LACTATE, POTASSIUM GLYCEROPHOSPHATE,  MAG [Concomitant]
  9. CONCLYTE MG (MAGNESIUM SULFATE) [Concomitant]
  10. ELEMENMIC (ZINC SULFATE, MANGANESE CHLORIDE) [Concomitant]
  11. NEOLAMIN MULTI V (VITAMINS NOS) [Concomitant]
  12. GLUCOSE (GLUCOSE) [Concomitant]
  13. FRAGMIN [Concomitant]
  14. ZANTAC 150 [Concomitant]
  15. PROGRAF [Concomitant]
  16. VENOGLOBULIN-I [Concomitant]
  17. LASIX [Concomitant]
  18. MEROPEN (MEROPENEM TRIHYDRATE) [Concomitant]
  19. HABEKACIN (ARBEKACIN SULFATE) [Concomitant]
  20. ANTHROBIN P (ANTITHROMBIN III) [Concomitant]
  21. PRIMPERAN ELIXIR [Concomitant]
  22. ROPION (FLURBIPROFEN AXETIL) [Concomitant]
  23. ATARAX [Concomitant]
  24. POTASSIUM CHLORIDE [Concomitant]
  25. SOLU-CORTEF [Concomitant]
  26. ZOVIRAX [Concomitant]
  27. TARGOCID [Concomitant]
  28. PREDONINE (PREDNISOLONE SODIUM SUCCINATE) [Concomitant]

REACTIONS (8)
  - ACUTE RESPIRATORY DISTRESS SYNDROME [None]
  - BLOOD PRESSURE DECREASED [None]
  - EPISTAXIS [None]
  - HAEMATEMESIS [None]
  - NAUSEA [None]
  - PULMONARY HAEMORRHAGE [None]
  - PULMONARY HYPERTENSION [None]
  - VOMITING [None]
